FAERS Safety Report 23243433 (Version 1)
Quarter: 2023Q4

REPORT INFORMATION
  Report Type: Report from Study
  Country: CN (occurrence: CN)
  Receive Date: 20231130
  Receipt Date: 20231130
  Transmission Date: 20240109
  Serious: Yes (Life-Threatening, Hospitalization)
  Sender: FDA-Public Use
  Company Number: CN-91310115MA1K3JP04B-2023JYP000034

PATIENT
  Age: 69 Year
  Sex: Female
  Weight: 37.9 kg

DRUGS (3)
  1. TORIPALIMAB [Suspect]
     Active Substance: TORIPALIMAB
     Indication: Lung adenocarcinoma
     Dosage: 240 MG, Q3WEEKS
     Route: 041
     Dates: start: 20230609, end: 20230609
  2. INVESTIGATIONAL PRODUCT [Suspect]
     Active Substance: INVESTIGATIONAL PRODUCT
     Indication: Lung adenocarcinoma
     Dosage: 1.1 MG,QD
     Route: 048
     Dates: start: 20230609, end: 20230612
  3. INVESTIGATIONAL PRODUCT [Suspect]
     Active Substance: INVESTIGATIONAL PRODUCT
     Dosage: 1.1 MG, QD
     Route: 048
     Dates: start: 20230620, end: 20230623

REACTIONS (1)
  - Cardiac failure [Not Recovered/Not Resolved]

NARRATIVE: CASE EVENT DATE: 20230623
